FAERS Safety Report 9459217 (Version 1)
Quarter: 2013Q3

REPORT INFORMATION
  Report Type: Spontaneous
  Country: RS (occurrence: RS)
  Receive Date: 20130814
  Receipt Date: 20130814
  Transmission Date: 20140515
  Serious: Yes (Other)
  Sender: FDA-Public Use
  Company Number: PHHY2013RS081130

PATIENT
  Age: 34 Year
  Sex: Female

DRUGS (5)
  1. HEPARIN [Suspect]
     Indication: THROMBOLYSIS
     Route: 042
  2. ACENOCOUMAROL [Suspect]
     Indication: ANTICOAGULANT THERAPY
  3. ALTEPLASE [Suspect]
     Indication: THROMBOLYSIS
  4. LEPIRUDIN [Suspect]
     Route: 042
  5. DANAPAROID [Suspect]
     Indication: ANTICOAGULANT THERAPY

REACTIONS (3)
  - Heparin-induced thrombocytopenia [Recovering/Resolving]
  - Premature labour [Unknown]
  - Maternal exposure during pregnancy [Unknown]
